FAERS Safety Report 5481022-9 (Version None)
Quarter: 2007Q4

REPORT INFORMATION
  Report Type: 
  Country: None (occurrence: None)
  Receive Date: 20071004
  Receipt Date: 20071001
  Transmission Date: 20080405
  Serious: Yes (Life-Threatening, Hospitalization)
  Sender: FDA-Public Use
  Company Number: 2007-163862-NL

PATIENT
  Sex: Female

DRUGS (4)
  1. MIRTAZAPINE [Suspect]
     Dosage: 15 MG QD/30 MG QD
     Dates: start: 20070401, end: 20070701
  2. MIRTAZAPINE [Suspect]
     Dosage: 15 MG QD/30 MG QD
     Dates: start: 20070701, end: 20070823
  3. RISPERIDONE [Concomitant]
  4. QUETIAPINE FUMARATE [Concomitant]

REACTIONS (2)
  - SEROTONIN SYNDROME [None]
  - SUICIDE ATTEMPT [None]
